FAERS Safety Report 4474226-5 (Version None)
Quarter: 2004Q4

REPORT INFORMATION
  Report Type: 
  Country: None (occurrence: None)
  Receive Date: 20041008
  Receipt Date: 20040922
  Transmission Date: 20050328
  Serious: Yes (Hospitalization, Other)
  Sender: FDA-Public Use
  Company Number: 1562

PATIENT
  Age: 70 Year
  Sex: Male

DRUGS (1)
  1. ADRIAMYCIN (DOXORUBICIN) INJ -  BEN VENUE LABS, INC. [Suspect]
     Indication: HEPATIC NEOPLASM MALIGNANT
     Dosage: 60 MG/M^2; Q3W; IV
     Route: 042
     Dates: start: 20040812, end: 20040903

REACTIONS (1)
  - HYPERBILIRUBINAEMIA [None]
